FAERS Safety Report 7194052-6 (Version None)
Quarter: 2010Q4

REPORT INFORMATION
  Report Type: 
  Country: None (occurrence: None)
  Receive Date: 20101223
  Receipt Date: 20100927
  Transmission Date: 20110411
  Serious: No
  Sender: FDA-Public Use
  Company Number: US-AMGEN-TCS432989

PATIENT

DRUGS (25)
  1. ENBREL [Suspect]
     Indication: ANKYLOSING SPONDYLITIS
     Dosage: 50 MG, QWK
     Route: 058
     Dates: start: 20100601
  2. SULFASALAZINE [Concomitant]
     Dosage: 500 MG, BID
     Dates: start: 20100222
  3. GABAPENTIN [Concomitant]
     Dosage: 800 MG, TID
     Dates: start: 20100222
  4. BACLOFEN [Concomitant]
     Dosage: 10 MG, TID
     Dates: start: 20100222
  5. ALPRAZOLAM [Concomitant]
     Dosage: 1 MG, TID
     Dates: start: 20100222
  6. FUROSEMIDE [Concomitant]
     Dosage: 20 MG, QD
     Dates: start: 20100222
  7. LORATADINE [Concomitant]
     Dosage: UNK UNK, PRN
     Dates: start: 20100222
  8. OXYCODONE [Concomitant]
     Dosage: 30 MG, QID
     Dates: start: 20100222
  9. OXYCODONE [Concomitant]
     Dosage: 20 MG, UNK
     Dates: start: 20100222
  10. CARISOPRODOL [Concomitant]
     Dosage: 350 MG, QID
     Dates: start: 20100222
  11. TRAZODONE [Concomitant]
     Dosage: 100 MG, QD
     Dates: start: 20100222
  12. OMEPRAZOLE [Concomitant]
     Dosage: 20 MG, UNK
     Dates: start: 20100222
  13. DICLOFENAC SODIUM [Concomitant]
     Dosage: UNK UNK, PRN
     Dates: start: 20100222
  14. PROCHLORPERAZINE EDISYLATE [Concomitant]
     Dosage: 10 MG, PRN
     Dates: start: 20100222
  15. ZINC [Concomitant]
     Dosage: 50 MG, QD
     Dates: start: 20100222
  16. LOVAZA [Concomitant]
     Dosage: UNK UNK, QD
     Dates: start: 20100222
  17. MSM [Concomitant]
     Dosage: 1000 MG, QD
     Dates: start: 20100222
  18. FOLIC ACID [Concomitant]
     Dosage: 1 MG, QD
     Dates: start: 20100222
  19. PYRIDOXINE HYDROCHLORIDE [Concomitant]
     Dosage: 100 MG, UNK
     Dates: start: 20100222
  20. CYANOCOBALAMIN [Concomitant]
     Dosage: UNK UNK, UNK
     Dates: start: 20100222
  21. NICOTINIC ACID [Concomitant]
     Dosage: UNK UNK, UNK
     Dates: start: 20100222
  22. SPIRONOLACTONE [Concomitant]
     Dosage: 25 MG, UNK
     Dates: start: 20100222
  23. CONJUGATED ESTROGEN [Concomitant]
     Dosage: UNK UNK, UNK
     Dates: start: 20100222
  24. MORPHINE SULFATE [Concomitant]
     Dosage: 60 MG, Q12H
  25. TEMAZEPAM [Concomitant]
     Dosage: 30 MG, PRN
     Dates: start: 20100222

REACTIONS (9)
  - DIARRHOEA [None]
  - FALL [None]
  - INJECTION SITE ERYTHEMA [None]
  - INJECTION SITE PRURITUS [None]
  - INJECTION SITE SWELLING [None]
  - INSOMNIA [None]
  - JOINT STIFFNESS [None]
  - NAUSEA [None]
  - TOOTH FRACTURE [None]
